FAERS Safety Report 7530050-8 (Version None)
Quarter: 2011Q2

REPORT INFORMATION
  Report Type: 
  Country: None (occurrence: None)
  Receive Date: 20110607
  Receipt Date: 20110525
  Transmission Date: 20111010
  Serious: Yes (Hospitalization)
  Sender: FDA-Public Use
  Company Number: PHHY2011CA31566

PATIENT
  Sex: Female

DRUGS (1)
  1. SANDOSTATIN LAR [Suspect]
     Indication: GLUCAGONOMA
     Dosage: 30 MG, QMO
     Route: 030
     Dates: start: 20080304

REACTIONS (3)
  - NAUSEA [None]
  - RENAL TUBULAR ACIDOSIS [None]
  - VOMITING [None]
